FAERS Safety Report 20813920 (Version 1)
Quarter: 2022Q2

REPORT INFORMATION
  Report Type: Report from Study
  Country: CA (occurrence: CA)
  Receive Date: 20220511
  Receipt Date: 20220511
  Transmission Date: 20220721
  Serious: Yes (Other)
  Sender: FDA-Public Use
  Company Number: CA-JAZZ-2022-CA-015698

PATIENT
  Sex: Female

DRUGS (19)
  1. XYREM [Suspect]
     Active Substance: SODIUM OXYBATE
     Indication: Cataplexy
     Dosage: 4.5 GRAM, DIVIDED IN TWO EQUAL DOSES (QHS AND 2.5-4HRS AFTER 1ST DOSE)
     Route: 048
     Dates: start: 20200730, end: 20200805
  2. XYREM [Suspect]
     Active Substance: SODIUM OXYBATE
     Indication: Narcolepsy
     Dosage: 5.25 GRAM
     Route: 048
     Dates: start: 20200806, end: 20200911
  3. XYREM [Suspect]
     Active Substance: SODIUM OXYBATE
     Dosage: 5.5 GRAM, DIVIDED IN TWO EQUAL DOSES (QHS AND 2.5-4HRS AFTER 1ST DOSE)
     Route: 048
     Dates: start: 20200911, end: 20201021
  4. XYREM [Suspect]
     Active Substance: SODIUM OXYBATE
     Dosage: 6 GRAM, DIVIDED IN TWO EQUAL DOSES (QHS AND 2.5-4HRS AFTER 1ST DOSE)
     Route: 048
     Dates: start: 20201022, end: 20210115
  5. XYREM [Suspect]
     Active Substance: SODIUM OXYBATE
     Dosage: 6.25 GRAM
     Route: 048
     Dates: start: 20210116, end: 20210116
  6. XYREM [Suspect]
     Active Substance: SODIUM OXYBATE
     Dosage: 6.5 GRAM
     Route: 048
     Dates: start: 20210117, end: 20210225
  7. XYREM [Suspect]
     Active Substance: SODIUM OXYBATE
     Dosage: 6.75 GRAM
     Route: 048
     Dates: start: 20210226, end: 20210429
  8. XYREM [Suspect]
     Active Substance: SODIUM OXYBATE
     Dosage: 7 GRAM
     Route: 048
     Dates: start: 20210430
  9. XYREM [Suspect]
     Active Substance: SODIUM OXYBATE
     Dosage: 7.5 GRAM
     Route: 048
     Dates: start: 20210804, end: 20211108
  10. XYREM [Suspect]
     Active Substance: SODIUM OXYBATE
     Dosage: 7.75 GRAM
     Route: 048
     Dates: start: 20211109
  11. ADDERALL [Concomitant]
     Active Substance: AMPHETAMINE ASPARTATE\AMPHETAMINE SULFATE\DEXTROAMPHETAMINE SACCHARATE\DEXTROAMPHETAMINE SULFATE
     Indication: Product used for unknown indication
     Dosage: UNK
  12. MODAFINIL [Concomitant]
     Active Substance: MODAFINIL
     Indication: Product used for unknown indication
     Dosage: UNK
  13. EFFEXOR [Concomitant]
     Active Substance: VENLAFAXINE HYDROCHLORIDE
     Indication: Product used for unknown indication
     Dosage: UNK
  14. ERGOCALCIFEROL [Concomitant]
     Active Substance: ERGOCALCIFEROL
     Indication: Product used for unknown indication
     Dosage: DOSE : 1000 IU
  15. ACCUTANE [Concomitant]
     Active Substance: ISOTRETINOIN
     Indication: Product used for unknown indication
     Dosage: DOSE : 20 MG HS
  16. CETIRIZINE HYDROCHLORIDE [Concomitant]
     Active Substance: CETIRIZINE HYDROCHLORIDE
     Indication: Product used for unknown indication
     Dosage: 20 MG AM
  17. VENLAFAXINE [Concomitant]
     Active Substance: VENLAFAXINE HYDROCHLORIDE
     Indication: Product used for unknown indication
     Dosage: 187.5 MILLIGRAM
  18. ABILIFY [Concomitant]
     Active Substance: ARIPIPRAZOLE
     Indication: Product used for unknown indication
     Dosage: 1 MILLIGRAM
  19. VYVANSE [Concomitant]
     Active Substance: LISDEXAMFETAMINE DIMESYLATE
     Indication: Product used for unknown indication
     Dosage: 60 MILLIGRAM

REACTIONS (5)
  - Loss of consciousness [Unknown]
  - Eye contusion [Unknown]
  - Lip injury [Unknown]
  - Skin laceration [Unknown]
  - Fall [Unknown]
